FAERS Safety Report 8554320-X (Version None)
Quarter: 2012Q3

REPORT INFORMATION
  Report Type: 
  Country: None (occurrence: None)
  Receive Date: 20120731
  Receipt Date: 20120724
  Transmission Date: 20120928
  Serious: No
  Sender: FDA-Public Use
  Company Number: US-B.I. PHARMACEUTICALS,INC./RIDGEFIELD-2012-BP-16484BP

PATIENT
  Sex: Male

DRUGS (2)
  1. ADVAIR [Concomitant]
     Indication: ASTHMA
  2. SPIRIVA [Suspect]
     Indication: ASTHMA
     Dates: start: 20080101

REACTIONS (1)
  - DRUG EFFECT DECREASED [None]
